FAERS Safety Report 6788359-1 (Version None)
Quarter: 2010Q2

REPORT INFORMATION
  Report Type: 
  Country: None (occurrence: None)
  Receive Date: 20100623
  Receipt Date: 20080319
  Transmission Date: 20101027
  Serious: Yes (Hospitalization)
  Sender: FDA-Public Use
  Company Number: US-PFIZER INC-2008017565

PATIENT
  Age: 20 Year
  Sex: Male
  Weight: 77.1 kg

DRUGS (4)
  1. GEODON [Suspect]
     Indication: BIPOLAR DISORDER
     Route: 048
     Dates: start: 20080124, end: 20080207
  2. LAMICTAL [Concomitant]
  3. AMBIEN [Concomitant]
  4. CONCERTA [Concomitant]

REACTIONS (1)
  - DYSTONIA [None]
